FAERS Safety Report 9006989 (Version 1)
Quarter: 2013Q1

REPORT INFORMATION
  Report Type: Spontaneous
  Country: IT (occurrence: IT)
  Receive Date: 20130110
  Receipt Date: 20130110
  Transmission Date: 20140127
  Serious: Yes (Hospitalization)
  Sender: FDA-Public Use
  Company Number: IT-TEVA-379728ISR

PATIENT
  Age: 42 Year
  Sex: Male

DRUGS (1)
  1. CISPLATINO TEVA [Suspect]
     Indication: TONGUE NEOPLASM MALIGNANT STAGE UNSPECIFIED
     Dosage: 40 MILLIGRAM DAILY;
     Route: 042
     Dates: start: 20121108, end: 20121216

REACTIONS (3)
  - Neutropenia [Not Recovered/Not Resolved]
  - Asthenia [Not Recovered/Not Resolved]
  - Presyncope [Not Recovered/Not Resolved]
